FAERS Safety Report 6234483-1 (Version None)
Quarter: 2009Q2

REPORT INFORMATION
  Report Type: 
  Country: None (occurrence: None)
  Receive Date: 20090618
  Receipt Date: 20080715
  Transmission Date: 20091009
  Serious: No
  Sender: FDA-Public Use
  Company Number: US-BRISTOL-MYERS SQUIBB COMPANY-14268049

PATIENT
  Age: 57 Year
  Sex: Female

DRUGS (2)
  1. SINEMET [Suspect]
     Indication: PARKINSON'S DISEASE
     Dosage: 1 DOSAGE FORM = 25/100 MG
     Route: 048
     Dates: start: 20060701
  2. TOPROL-XL [Concomitant]
     Dosage: 1 DOSAGE FORM = 25/100MG

REACTIONS (1)
  - BACK PAIN [None]
